FAERS Safety Report 19203542 (Version 2)
Quarter: 2021Q2

REPORT INFORMATION
  Report Type: Spontaneous
  Country: CN (occurrence: CN)
  Receive Date: 20210503
  Receipt Date: 20210507
  Transmission Date: 20210717
  Serious: Yes (Other)
  Sender: FDA-Public Use
  Company Number: CN-SA-2021SA135539

PATIENT
  Age: 69 Year
  Sex: Female

DRUGS (3)
  1. INSULIN ASPART 30 [Concomitant]
     Indication: TYPE 2 DIABETES MELLITUS
     Dosage: 18 IU, BID (18U IN THE MORNING AND 18U IN THE EVENING)
     Route: 058
     Dates: start: 2019
  2. LYXUMIA [Suspect]
     Active Substance: LIXISENATIDE
     Dosage: 20 UG, QD
     Route: 058
     Dates: start: 20210220, end: 20210225
  3. LYXUMIA [Suspect]
     Active Substance: LIXISENATIDE
     Indication: TYPE 2 DIABETES MELLITUS
     Dosage: 10 UG, QD
     Route: 058
     Dates: start: 20210108, end: 20210219

REACTIONS (7)
  - Haemorrhage subcutaneous [Recovering/Resolving]
  - Therapy cessation [Unknown]
  - Rash maculo-papular [Recovering/Resolving]
  - Condition aggravated [Recovering/Resolving]
  - Dermatitis [Recovering/Resolving]
  - Pruritus [Not Recovered/Not Resolved]
  - Henoch-Schonlein purpura [Recovering/Resolving]

NARRATIVE: CASE EVENT DATE: 202101
